FAERS Safety Report 17004778 (Version 1)
Quarter: 2019Q4

REPORT INFORMATION
  Report Type: Spontaneous
  Country: US (occurrence: US)
  Receive Date: 20191107
  Receipt Date: 20191107
  Transmission Date: 20200122
  Serious: Yes (Other)
  Sender: FDA-Public Use
  Company Number: US-MYLANLABS-2019M1106511

PATIENT
  Age: 61 Year
  Sex: Female

DRUGS (25)
  1. CISPLATIN. [Concomitant]
     Active Substance: CISPLATIN
     Indication: BREAST CANCER METASTATIC
     Dosage: FLAT DOSE; 4 DOSES
     Route: 065
     Dates: start: 201307, end: 201309
  2. VINORELBINE [Concomitant]
     Active Substance: VINORELBINE TARTRATE
     Indication: TRIPLE NEGATIVE BREAST CANCER
     Dosage: 15 MILLIGRAM/SQ. METER
     Route: 065
     Dates: start: 201403
  3. GEMCITABINE. [Suspect]
     Active Substance: GEMCITABINE
     Indication: BREAST CANCER METASTATIC
  4. ERIBULIN [Suspect]
     Active Substance: ERIBULIN
     Indication: BREAST CANCER METASTATIC
  5. CARBOPLATIN. [Concomitant]
     Active Substance: CARBOPLATIN
     Indication: BREAST CANCER METASTATIC
  6. DOXORUBICIN [Concomitant]
     Active Substance: DOXORUBICIN
     Indication: BREAST CANCER METASTATIC
  7. VINORELBINE [Concomitant]
     Active Substance: VINORELBINE TARTRATE
     Indication: BREAST CANCER METASTATIC
  8. INTERFERON ALFA 2B [Concomitant]
     Active Substance: INTERFERON ALFA-2B
     Indication: IMMUNOLOGY TEST
     Dosage: UNK
     Route: 065
  9. OXALIPLATIN. [Suspect]
     Active Substance: OXALIPLATIN
     Indication: TRIPLE NEGATIVE BREAST CANCER
     Dosage: 45-50 MG/M2
     Route: 065
     Dates: start: 201401, end: 201403
  10. ERIBULIN [Suspect]
     Active Substance: ERIBULIN
     Indication: TRIPLE NEGATIVE BREAST CANCER
     Dosage: 12 DOSES FOLLOWED BY 3 DOSES
     Route: 065
     Dates: start: 201310, end: 201403
  11. PACLITAXEL. [Concomitant]
     Active Substance: PACLITAXEL
     Indication: TRIPLE NEGATIVE BREAST CANCER
     Dosage: 12 DOSES
     Route: 065
     Dates: start: 201207, end: 201211
  12. CARBOPLATIN. [Concomitant]
     Active Substance: CARBOPLATIN
     Indication: TRIPLE NEGATIVE BREAST CANCER
     Dosage: AREA UNDER THE CURVE (AUC) 2.25; 12 DOSES
     Route: 065
     Dates: start: 201207, end: 201211
  13. FOLINIC ACID [Concomitant]
     Active Substance: LEUCOVORIN
     Indication: BREAST CANCER METASTATIC
  14. OXALIPLATIN. [Suspect]
     Active Substance: OXALIPLATIN
     Indication: BREAST CANCER METASTATIC
     Dosage: 4 DOSES
     Route: 065
     Dates: start: 201403, end: 201406
  15. PACLITAXEL. [Concomitant]
     Active Substance: PACLITAXEL
     Dosage: 4 DOSES
     Route: 065
     Dates: start: 201307, end: 201309
  16. FOLINIC ACID [Concomitant]
     Active Substance: LEUCOVORIN
     Indication: TRIPLE NEGATIVE BREAST CANCER
     Dosage: MINIMUM DOSE OF 40 MG
     Route: 065
     Dates: start: 201207, end: 201301
  17. DOXORUBICIN [Concomitant]
     Active Substance: DOXORUBICIN
     Indication: TRIPLE NEGATIVE BREAST CANCER
     Dosage: 20 MILLIGRAM/SQ. METER, BIWEEKLY
     Route: 065
     Dates: start: 201212, end: 201301
  18. ZOLEDRONIC ACID [Concomitant]
     Active Substance: ZOLEDRONIC ACID
     Indication: OSTEOMYELITIS
     Dosage: UNK
     Route: 065
     Dates: end: 201406
  19. GEMCITABINE. [Suspect]
     Active Substance: GEMCITABINE
     Indication: TRIPLE NEGATIVE BREAST CANCER
     Dosage: 4 DOSES
     Route: 065
     Dates: start: 201307, end: 201309
  20. PACLITAXEL. [Concomitant]
     Active Substance: PACLITAXEL
     Indication: BREAST CANCER METASTATIC
     Dosage: 50 - 60 MG/M2; 11 DOSES
     Route: 065
     Dates: start: 201212, end: 201301
  21. FLUOROURACIL. [Suspect]
     Active Substance: FLUOROURACIL
     Indication: TRIPLE NEGATIVE BREAST CANCER
     Dosage: 12 DOSES FOLLOWED BY 6 DOSES
     Route: 065
     Dates: start: 201207, end: 201301
  22. CISPLATIN. [Concomitant]
     Active Substance: CISPLATIN
     Dosage: 15 MILLIGRAM/SQ. METER
     Route: 065
     Dates: start: 201310, end: 201401
  23. FLUOROURACIL. [Suspect]
     Active Substance: FLUOROURACIL
     Indication: BREAST CANCER METASTATIC
  24. PACLITAXEL. [Concomitant]
     Active Substance: PACLITAXEL
     Dosage: 50 MILLIGRAM/SQ. METER
     Route: 065
     Dates: start: 201302, end: 201307
  25. CISPLATIN. [Concomitant]
     Active Substance: CISPLATIN
     Indication: TRIPLE NEGATIVE BREAST CANCER
     Dosage: 15 MILLIGRAM/SQ. METER
     Route: 065
     Dates: start: 201302, end: 201307

REACTIONS (3)
  - Stomatitis [Unknown]
  - Thrombocytopenia [Unknown]
  - Cytopenia [Unknown]
